FAERS Safety Report 6107659-1 (Version None)
Quarter: 2009Q1

REPORT INFORMATION
  Report Type: 
  Country: None (occurrence: None)
  Receive Date: 20090306
  Receipt Date: 20090306
  Transmission Date: 20090719
  Serious: Yes (Hospitalization)
  Sender: FDA-Public Use
  Company Number: None

PATIENT
  Age: 67 Year
  Sex: Female
  Weight: 85.1 kg

DRUGS (12)
  1. CETUXIMAB [Suspect]
     Indication: NON-SMALL CELL LUNG CANCER
     Dosage: 250 MG/M2 WEEKLY IV
     Route: 042
     Dates: start: 20090129, end: 20090212
  2. LIPITOR [Concomitant]
  3. ISOSORBIDE MONONITRATE [Concomitant]
  4. TOPROL-XL [Concomitant]
  5. ASPIRIN [Concomitant]
  6. VENTOLIN [Concomitant]
  7. OXYBUTYNIN CHLORIDE [Concomitant]
  8. NEXIUM [Concomitant]
  9. GLYBURIDE [Concomitant]
  10. FOLIC ACID [Concomitant]
  11. VITAMIN B-12 [Concomitant]
  12. CALCIUM + D [Concomitant]

REACTIONS (16)
  - ANGINA PECTORIS [None]
  - AORTIC STENOSIS [None]
  - AORTIC VALVE STENOSIS [None]
  - CARDIAC MURMUR [None]
  - EFFUSION [None]
  - ELECTROCARDIOGRAM T WAVE AMPLITUDE DECREASED [None]
  - LEFT ATRIAL DILATATION [None]
  - LUNG NEOPLASM [None]
  - MITRAL VALVE CALCIFICATION [None]
  - MITRAL VALVE INCOMPETENCE [None]
  - MITRAL VALVE STENOSIS [None]
  - PNEUMONIA [None]
  - PULMONARY ARTERIAL PRESSURE INCREASED [None]
  - PULMONARY OEDEMA [None]
  - TACHYCARDIA [None]
  - TRICUSPID VALVE INCOMPETENCE [None]
